FAERS Safety Report 12610077 (Version 3)
Quarter: 2016Q3

REPORT INFORMATION
  Report Type: Spontaneous
  Country: VE (occurrence: VE)
  Receive Date: 20160801
  Receipt Date: 20160808
  Transmission Date: 20161109
  Serious: Yes (Hospitalization, Other)
  Sender: FDA-Public Use
  Company Number: PHHY2016VE104348

PATIENT
  Sex: Male

DRUGS (6)
  1. VALPRON//VALPROATE SODIUM [Concomitant]
     Active Substance: VALPROATE SODIUM
     Indication: SEIZURE
     Dosage: 1750 MG, QD
     Route: 065
  2. VALCOTE [Concomitant]
     Active Substance: VALPROATE SODIUM
     Indication: NEOPLASM
     Dosage: 1750 MG, QD
     Route: 065
  3. TEGRETOL [Suspect]
     Active Substance: CARBAMAZEPINE
     Indication: SEIZURE
     Dosage: 100 MG, BID (100 MG IN THE MORNING AND 100 MG IN THE AFTERNOON)
     Route: 048
  4. TEGRETOL [Suspect]
     Active Substance: CARBAMAZEPINE
     Indication: BRAIN NEOPLASM
     Dosage: 600 MG, QD (400 MG IN THE MORNING AND 200 MG IN THE AFTERNOON)
     Route: 048
  5. TOPIRAMATE. [Suspect]
     Active Substance: TOPIRAMATE
     Indication: BRAIN NEOPLASM
     Dosage: 200 MG, QD (150 MG AND 50 IN THE AFTERNOON)
     Route: 048
  6. TOPIRAMATE. [Suspect]
     Active Substance: TOPIRAMATE
     Dosage: 150 MG, QD (100 MG AND 50 MG)

REACTIONS (12)
  - Epilepsy [Unknown]
  - Malaise [Unknown]
  - Anxiety [Unknown]
  - Aphonia [Unknown]
  - Product use issue [Unknown]
  - Seizure [Unknown]
  - Micturition urgency [Unknown]
  - Stress [Unknown]
  - Excessive eye blinking [Unknown]
  - Facial paralysis [Unknown]
  - Tongue biting [Unknown]
  - Wrong technique in product usage process [Unknown]
